FAERS Safety Report 9431125 (Version 1)
Quarter: 2013Q3

REPORT INFORMATION
  Report Type: Spontaneous
  Country: US (occurrence: US)
  Receive Date: 20130730
  Receipt Date: 20130730
  Transmission Date: 20140515
  Serious: Yes (Hospitalization, Other)
  Sender: FDA-Public Use
  Company Number: US-BAYER-2013-090012

PATIENT
  Age: 23 Year
  Sex: Female

DRUGS (2)
  1. SAFYRAL [Suspect]
     Indication: MENORRHAGIA
  2. BEYAZ [Suspect]
     Indication: MENORRHAGIA

REACTIONS (3)
  - Pulmonary embolism [None]
  - Cholelithiasis [None]
  - Pulmonary embolism [None]
